FAERS Safety Report 12954673 (Version 1)
Quarter: 2016Q4

REPORT INFORMATION
  Report Type: Other
  Country: GB (occurrence: GB)
  Receive Date: 20161118
  Receipt Date: 20161118
  Transmission Date: 20170207
  Serious: Yes (Other)
  Sender: FDA-Public Use
  Company Number: GB-LUPIN PHARMACEUTICALS INC.-E2B_00006570

PATIENT
  Age: 77 Year
  Sex: Male

DRUGS (1)
  1. QUETIAPINE. [Suspect]
     Active Substance: QUETIAPINE
     Indication: HALLUCINATION, VISUAL
     Dosage: 25 MG FOR 3 DAYS AND THEN 50 MG FOR 2 DAYS
     Route: 048
     Dates: start: 20161021, end: 20161025

REACTIONS (1)
  - Ocular hyperaemia [Not Recovered/Not Resolved]

NARRATIVE: CASE EVENT DATE: 20161026
